FAERS Safety Report 12145194 (Version 2)
Quarter: 2016Q1

REPORT INFORMATION
  Report Type: Spontaneous
  Country: FR (occurrence: FR)
  Receive Date: 20160304
  Receipt Date: 20160310
  Transmission Date: 20160526
  Serious: Yes (Hospitalization)
  Sender: FDA-Public Use
  Company Number: FR-EMD SERONO-8070039

PATIENT
  Age: 34 Year
  Sex: Female

DRUGS (3)
  1. FOSTIMON [Suspect]
     Active Substance: UROFOLLITROPIN
     Indication: PRODUCT USED FOR UNKNOWN INDICATION
     Route: 058
     Dates: start: 20150613, end: 20150620
  2. CETROTIDE [Suspect]
     Active Substance: CETRORELIX ACETATE
     Indication: PRODUCT USED FOR UNKNOWN INDICATION
     Route: 058
     Dates: start: 20150617, end: 20150620
  3. GONADOTROPIN CHORIONIC [Suspect]
     Active Substance: GONADOTROPHIN, CHORIONIC
     Indication: PRODUCT USED FOR UNKNOWN INDICATION
     Dosage: 5,000 IU/1 ML, FREEZE DRIED POWDER AND SOLUTION FOR PARENTERAL
     Route: 030
     Dates: start: 20150621, end: 20150621

REACTIONS (2)
  - Pelvic fluid collection [Recovered/Resolved]
  - Ovarian hyperstimulation syndrome [Recovered/Resolved]

NARRATIVE: CASE EVENT DATE: 20150628
